FAERS Safety Report 20227259 (Version 1)
Quarter: 2021Q4

REPORT INFORMATION
  Report Type: Spontaneous
  Country: US (occurrence: US)
  Receive Date: 20211224
  Receipt Date: 20211224
  Transmission Date: 20220303
  Serious: No
  Sender: FDA-Public Use
  Company Number: US-BAYER-2021A272914

PATIENT
  Age: 22 Year
  Sex: Male

DRUGS (1)
  1. GADAVIST [Suspect]
     Active Substance: GADOBUTROL
     Dosage: UNK, ONCE
     Dates: start: 20211222

REACTIONS (3)
  - Urticaria [None]
  - Throat irritation [None]
  - Nasal pruritus [None]

NARRATIVE: CASE EVENT DATE: 20211222
